FAERS Safety Report 6413728-9 (Version None)
Quarter: 2009Q4

REPORT INFORMATION
  Report Type: 
  Country: None (occurrence: None)
  Receive Date: 20091026
  Receipt Date: 20090923
  Transmission Date: 20100525
  Serious: No
  Sender: FDA-Public Use
  Company Number: US-BAYER-200934346NA

PATIENT
  Age: 32 Year
  Sex: Female
  Weight: 68 kg

DRUGS (1)
  1. YAZ [Suspect]
     Indication: CONTRACEPTION
     Route: 048
     Dates: start: 20090501, end: 20090801

REACTIONS (4)
  - ABDOMINAL PAIN UPPER [None]
  - ABNORMAL WITHDRAWAL BLEEDING [None]
  - DIZZINESS [None]
  - HEADACHE [None]
